FAERS Safety Report 9786548 (Version 3)
Quarter: 2014Q1

REPORT INFORMATION
  Report Type: Spontaneous
  Country: US (occurrence: US)
  Receive Date: 20131227
  Receipt Date: 20140109
  Transmission Date: 20141002
  Serious: Yes (Other)
  Sender: FDA-Public Use
  Company Number: US-NOVOPROD-390671

PATIENT
  Age: 53 Year
  Sex: Female

DRUGS (1)
  1. VICTOZA [Suspect]
     Indication: BLOOD GLUCOSE INCREASED
     Dosage: UNK
     Route: 058
     Dates: start: 2010

REACTIONS (1)
  - Pancreatic disorder [Unknown]
